FAERS Safety Report 20673205 (Version 8)
Quarter: 2022Q4

REPORT INFORMATION
  Report Type: Report from Study
  Country: US (occurrence: None)
  Receive Date: 20220405
  Receipt Date: 20221116
  Transmission Date: 20230113
  Serious: Yes (Hospitalization)
  Sender: FDA-Public Use
  Company Number: US-ROCHE-3063224

PATIENT
  Age: 77 Year
  Sex: Female
  Weight: 60 kg

DRUGS (21)
  1. ATEZOLIZUMAB [Suspect]
     Active Substance: ATEZOLIZUMAB
     Indication: Bile duct cancer
     Dosage: LAST DOSE OF ATEZOLIZUMAB ADMINISTERED PRIOR TO AE AND SAE: 1200 MG?ON 14/MAR/2022 RECEIVED MOST REC
     Route: 041
     Dates: start: 20210802
  2. BEVACIZUMAB [Suspect]
     Active Substance: BEVACIZUMAB
     Indication: Bile duct cancer
     Dosage: LAST DOSE OF BLINDED BEVACIZUMAB ADMINISTERED PRIOR TO AE AND SAE: 900 MG?ON 14/MAR/2022 RECEIVED MO
     Route: 042
     Dates: start: 20210802
  3. CISPLATIN [Suspect]
     Active Substance: CISPLATIN
     Indication: Bile duct cancer
     Dosage: LAST DOSE OF CISPLATIN ADMINISTERED PRIOR TO AE AND SAE IS 33 MG?ON 18/JAN/2022 RECEIVED MOST RECENT
     Route: 042
     Dates: start: 20210802
  4. GEMCITABINE [Suspect]
     Active Substance: GEMCITABINE
     Indication: Bile duct cancer
     Dosage: LAST DOSE OF GEMCITABINE ADMINISTERED PRIOR TO AE AND SAE IS 1330 MG?ON 18/JAN/2022 RECEIVED MOST RE
     Route: 042
     Dates: start: 20210802
  5. ADVAIR DISKUS [Concomitant]
     Active Substance: FLUTICASONE PROPIONATE\SALMETEROL XINAFOATE
     Indication: Asthma
     Dosage: MEDICATION DOSE 1 INHALATION
     Route: 055
  6. PRILOSEC [Concomitant]
     Active Substance: OMEPRAZOLE MAGNESIUM
     Dates: start: 20210310
  7. CONCERTA [Concomitant]
     Active Substance: METHYLPHENIDATE HYDROCHLORIDE
     Dates: start: 20210315
  8. LOTENSIN [Concomitant]
     Active Substance: BENAZEPRIL HYDROCHLORIDE
     Indication: Hypertension
     Dates: start: 20210316
  9. ZOCOR [Concomitant]
     Active Substance: SIMVASTATIN
     Dates: start: 20210320
  10. ZETIA [Concomitant]
     Active Substance: EZETIMIBE
     Dates: start: 20210409
  11. SINGULAIR [Concomitant]
     Active Substance: MONTELUKAST SODIUM
     Indication: Asthma
     Dates: start: 20210412
  12. PROZAC [Concomitant]
     Active Substance: FLUOXETINE HYDROCHLORIDE
     Indication: Depression
     Dates: start: 20210412
  13. RISPERDAL [Concomitant]
     Active Substance: RISPERIDONE
     Dates: start: 20210426
  14. SYNTHROID [Concomitant]
     Active Substance: LEVOTHYROXINE SODIUM
     Dates: start: 20210426
  15. ZOFRAN [Concomitant]
     Active Substance: ONDANSETRON HYDROCHLORIDE
     Dates: start: 20210713
  16. ZITHROMAX [Concomitant]
     Active Substance: AZITHROMYCIN DIHYDRATE
  17. CEFEPIME [Concomitant]
     Active Substance: CEFEPIME HYDROCHLORIDE
  18. VANCOMYCIN [Concomitant]
     Active Substance: VANCOMYCIN
  19. METRONIDAZOLE [Concomitant]
     Active Substance: METRONIDAZOLE
  20. OXYGEN [Concomitant]
     Active Substance: OXYGEN
  21. LEVOFLOXACIN [Concomitant]
     Active Substance: LEVOFLOXACIN

REACTIONS (2)
  - Colitis [Recovered/Resolved]
  - Pneumonia [Recovered/Resolved]

NARRATIVE: CASE EVENT DATE: 20220326
